FAERS Safety Report 5389245-4 (Version None)
Quarter: 2007Q3

REPORT INFORMATION
  Report Type: 
  Country: None (occurrence: None)
  Receive Date: 20070717
  Receipt Date: 20070712
  Transmission Date: 20080115
  Serious: Yes (Hospitalization)
  Sender: FDA-Public Use
  Company Number: A0663711A

PATIENT
  Age: 39 Year
  Sex: Male

DRUGS (6)
  1. LAMICTAL [Suspect]
     Indication: EPILEPSY
     Dosage: 200MG TWICE PER DAY
     Route: 048
     Dates: start: 20070412
  2. LYRICA [Concomitant]
  3. DILANTIN KAPSEAL [Concomitant]
  4. KEPPRA [Concomitant]
  5. CLONAZEPAM [Concomitant]
  6. UNSPECIFIED MEDICATION [Concomitant]

REACTIONS (6)
  - COMPLEX PARTIAL SEIZURES [None]
  - DRUG WITHDRAWAL SYNDROME [None]
  - MALAISE [None]
  - MUSCLE SPASMS [None]
  - NAUSEA [None]
  - TREMOR [None]
